FAERS Safety Report 7673220-0 (Version None)
Quarter: 2011Q3

REPORT INFORMATION
  Report Type: 
  Country: None (occurrence: None)
  Receive Date: 20110810
  Receipt Date: 20091106
  Transmission Date: 20111222
  Serious: No
  Sender: FDA-Public Use
  Company Number: 2009BI037174

PATIENT
  Age: 36 Year
  Sex: Female

DRUGS (3)
  1. ANTI-SPASTIC MEDICATION (NOS) [Concomitant]
     Indication: MULTIPLE SCLEROSIS
  2. TYSABRI [Suspect]
     Indication: MULTIPLE SCLEROSIS
     Route: 042
     Dates: start: 20090617, end: 20100520
  3. TYSABRI [Suspect]
     Route: 042
     Dates: start: 20110214

REACTIONS (6)
  - GAIT DISTURBANCE [None]
  - MULTIPLE SCLEROSIS RELAPSE [None]
  - DRUG EFFECT DECREASED [None]
  - DYSPHEMIA [None]
  - FEELING ABNORMAL [None]
  - IMPAIRED DRIVING ABILITY [None]
